FAERS Safety Report 6300468-X (Version None)
Quarter: 2009Q3

REPORT INFORMATION
  Report Type: 
  Country: None (occurrence: None)
  Receive Date: 20090806
  Receipt Date: 20081029
  Transmission Date: 20100115
  Serious: No
  Sender: FDA-Public Use
  Company Number: US-ABBOTT-08P-163-0484560-00

PATIENT
  Sex: Male
  Weight: 81.72 kg

DRUGS (7)
  1. DEPAKOTE ER [Suspect]
     Indication: AFFECTIVE DISORDER
     Route: 048
     Dates: start: 20080701
  2. BENZTROPINE MESYLATE [Concomitant]
     Indication: ADVERSE DRUG REACTION
     Route: 048
     Dates: start: 20080501
  3. DULOXETINE HYDROCHLORIDE [Concomitant]
     Indication: DRUG USE FOR UNKNOWN INDICATION
     Route: 048
  4. CLONAZEPAM [Concomitant]
     Indication: ANXIETY
     Route: 048
  5. REMARON [Concomitant]
     Indication: ANXIETY
     Route: 048
  6. SEROQUEL [Concomitant]
     Indication: PSYCHOTIC DISORDER
     Route: 048
  7. SEROQUEL [Concomitant]
     Indication: PROPHYLAXIS

REACTIONS (1)
  - ALOPECIA [None]
